FAERS Safety Report 9303792 (Version 6)
Quarter: 2013Q4

REPORT INFORMATION
  Report Type: Report from Study
  Country: AU (occurrence: AU)
  Receive Date: 20130522
  Receipt Date: 20131018
  Transmission Date: 20140711
  Serious: Yes (Hospitalization)
  Sender: FDA-Public Use
  Company Number: AU-CELGENEUS-008-21880-13051132

PATIENT
  Age: 65 Year
  Sex: Female

DRUGS (11)
  1. REVLIMID [Suspect]
     Indication: PLASMA CELL MYELOMA
     Route: 048
     Dates: start: 20130506, end: 20130526
  2. REVLIMID [Suspect]
     Route: 048
     Dates: start: 20130603
  3. ROMIDEPSIN [Suspect]
     Indication: PRODUCT USED FOR UNKNOWN INDICATION
     Route: 065
     Dates: start: 20130507, end: 20130507
  4. ROMIDEPSIN [Suspect]
     Route: 065
     Dates: start: 20130513
  5. ROMIDEPSIN [Suspect]
     Route: 065
  6. ROMIDEPSIN [Suspect]
     Route: 065
     Dates: start: 20130603
  7. ROMIDEPSIN [Suspect]
     Route: 065
     Dates: start: 20130506, end: 20130506
  8. DEXAMETHASONE [Suspect]
     Indication: PRODUCT USED FOR UNKNOWN INDICATION
     Route: 065
     Dates: start: 20130506
  9. DEXAMETHASONE [Suspect]
     Route: 065
     Dates: start: 20130603
  10. BACTRIM [Concomitant]
     Indication: PROPHYLAXIS
     Route: 065
  11. DAPSONE [Concomitant]
     Indication: PROPHYLAXIS
     Route: 065

REACTIONS (2)
  - Electrocardiogram QT prolonged [Recovered/Resolved]
  - Herpes virus infection [Recovered/Resolved]
